FAERS Safety Report 7558877-7 (Version None)
Quarter: 2011Q2

REPORT INFORMATION
  Report Type: 
  Country: None (occurrence: None)
  Receive Date: 20110613
  Receipt Date: 20110527
  Transmission Date: 20111010
  Serious: Yes (Other)
  Sender: FDA-Public Use
  Company Number: 2011MA006609

PATIENT
  Age: 40 Year
  Sex: Male

DRUGS (2)
  1. FINASTERIDE [Suspect]
     Indication: ALOPECIA
     Dosage: ; PO
     Route: 048
     Dates: start: 19980101, end: 20090101
  2. AVODART [Suspect]
     Indication: ALOPECIA
     Dosage: 500 MCG;
     Dates: start: 20080101, end: 20090101

REACTIONS (6)
  - DYSGEUSIA [None]
  - DARK CIRCLES UNDER EYES [None]
  - SKIN DISORDER [None]
  - WRONG TECHNIQUE IN DRUG USAGE PROCESS [None]
  - OVERDOSE [None]
  - INTENTIONAL DRUG MISUSE [None]
